FAERS Safety Report 23244501 (Version 3)
Quarter: 2025Q4

REPORT INFORMATION
  Report Type: Report from Study
  Country: CA (occurrence: None)
  Receive Date: 20231130
  Receipt Date: 20251226
  Transmission Date: 20260118
  Serious: Yes (Other)
  Sender: UCB
  Company Number: CA-UCBSA-2022064239

PATIENT
  Age: 66 Year

DRUGS (5)
  1. CERTOLIZUMAB PEGOL [Suspect]
     Active Substance: CERTOLIZUMAB PEGOL
     Indication: Ankylosing spondylitis
     Dosage: 400 MILLIGRAM, EV 2 WEEKS(QOW)
  2. CERTOLIZUMAB PEGOL [Suspect]
     Active Substance: CERTOLIZUMAB PEGOL
     Dosage: 200 MILLIGRAM, EV 2 WEEKS(QOW)
  3. CERTOLIZUMAB PEGOL [Suspect]
     Active Substance: CERTOLIZUMAB PEGOL
     Dosage: 200 MILLIGRAM, EV 2 WEEKS(QOW)
  4. VIMOVO [Concomitant]
     Active Substance: ESOMEPRAZOLE MAGNESIUM\NAPROXEN
     Indication: Product used for unknown indication
     Dosage: 500/20MG PRN
  5. CANDESARTAN [Concomitant]
     Active Substance: CANDESARTAN
     Indication: Product used for unknown indication

REACTIONS (13)
  - Bladder operation [Recovered/Resolved]
  - Lower respiratory tract infection [Recovered/Resolved]
  - Urinary cystectomy [Unknown]
  - Hyperbaric oxygen therapy [Recovered/Resolved]
  - Bladder disorder [Recovered/Resolved]
  - Illness [Recovered/Resolved]
  - Haemoglobin decreased [Recovered/Resolved]
  - Swelling face [Recovering/Resolving]
  - Malaise [Unknown]
  - COVID-19 [Not Recovered/Not Resolved]
  - Post procedural complication [Unknown]
  - Administration site pain [Unknown]
  - Intentional dose omission [Unknown]
